FAERS Safety Report 18088027 (Version 1)
Quarter: 2020Q3

REPORT INFORMATION
  Report Type: Spontaneous
  Country: US (occurrence: US)
  Receive Date: 20200729
  Receipt Date: 20200729
  Transmission Date: 20201103
  Serious: No
  Sender: FDA-Public Use
  Company Number: US-ALEMBIC PHARMACUETICALS LIMITED-2020SCAL000315

PATIENT

DRUGS (8)
  1. NORTRIPTYLINE [Concomitant]
     Active Substance: NORTRIPTYLINE
     Indication: BIPOLAR DISORDER
     Dosage: 50 MILLIGRAM, 3 CAPSULES AT BEDTIME
     Route: 048
  2. MODAFINIL. [Suspect]
     Active Substance: MODAFINIL
     Dosage: 200 MILLIGRAM, BID, EVERY 12 HRS
     Route: 048
     Dates: start: 20200708
  3. NORTRIPTYLINE [Concomitant]
     Active Substance: NORTRIPTYLINE
     Indication: BIPOLAR I DISORDER
  4. ALPRAZOLAM. [Concomitant]
     Active Substance: ALPRAZOLAM
     Indication: BIPOLAR DISORDER
     Dosage: ALPRAZOLAM TWICE IN A DAY AS NEEDED
     Route: 048
  5. ALPRAZOLAM. [Concomitant]
     Active Substance: ALPRAZOLAM
     Indication: BIPOLAR I DISORDER
  6. GABAPENTIN. [Concomitant]
     Active Substance: GABAPENTIN
     Indication: BIPOLAR DISORDER
     Dosage: 3 DOSAGE FORM, BID (400MG 3 CAPSULES 2X A DAY)
     Route: 048
  7. GABAPENTIN. [Concomitant]
     Active Substance: GABAPENTIN
     Indication: BIPOLAR I DISORDER
  8. MODAFINIL. [Suspect]
     Active Substance: MODAFINIL
     Indication: BIPOLAR DISORDER
     Dosage: 200 MILLIGRAM, OD
     Route: 048

REACTIONS (3)
  - Malaise [Not Recovered/Not Resolved]
  - Therapeutic product effect incomplete [Unknown]
  - Product solubility abnormal [Not Recovered/Not Resolved]

NARRATIVE: CASE EVENT DATE: 20200708
